FAERS Safety Report 7801307-8 (Version None)
Quarter: 2011Q4

REPORT INFORMATION
  Report Type: 
  Country: None (occurrence: None)
  Receive Date: 20111006
  Receipt Date: 20111006
  Transmission Date: 20120403
  Serious: Yes (Hospitalization)
  Sender: FDA-Public Use
  Company Number: None

PATIENT
  Age: 68 Year
  Sex: Female
  Weight: 105.2 kg

DRUGS (15)
  1. TOVIAZ [Concomitant]
  2. CYTOMEL [Concomitant]
  3. PAXIL [Concomitant]
  4. COREG [Concomitant]
  5. PROTONIX [Concomitant]
  6. CRESTOR [Concomitant]
  7. AMLODIPINE [Concomitant]
  8. ALBUTEROL [Concomitant]
  9. TEKTURNA [Concomitant]
  10. SINGULAIR [Concomitant]
  11. METFORMIN/SITAGLIPTIN [Concomitant]
  12. ADVAIR DISKUS 100/50 [Concomitant]
  13. SYNTHROID [Concomitant]
  14. LITHIUM [Suspect]
     Indication: DEPRESSION
     Dosage: 300MG QAM PO RECENTLY
     Route: 048
  15. XANAX [Concomitant]

REACTIONS (1)
  - TOXICITY TO VARIOUS AGENTS [None]
